FAERS Safety Report 8149246-X (Version None)
Quarter: 2012Q1

REPORT INFORMATION
  Report Type: 
  Country: None (occurrence: None)
  Receive Date: 20120218
  Receipt Date: 20110919
  Transmission Date: 20120608
  Serious: No
  Sender: FDA-Public Use
  Company Number: US-ALLERGAN-1112389US

PATIENT
  Sex: Female

DRUGS (5)
  1. BOTOX COSMETIC [Suspect]
     Dosage: 24 UNITS, SINGLE
     Route: 030
     Dates: start: 20110501, end: 20110501
  2. BOTOX COSMETIC [Suspect]
     Indication: SKIN WRINKLING
     Dosage: 52 UNITS TOTAL (MULTIPLE INJECTIONS)
     Route: 030
     Dates: start: 20101201, end: 20101201
  3. BOTOX COSMETIC [Suspect]
     Dosage: 28 UNITS, SINGLE
     Route: 030
     Dates: start: 20110222, end: 20110222
  4. BOTOX COSMETIC [Suspect]
     Dosage: UNITS UNKNOWN
     Route: 030
     Dates: start: 20110901, end: 20110901
  5. BOTOX COSMETIC [Suspect]
     Dosage: 28 UNITS, SINGLE
     Route: 030
     Dates: start: 20110601, end: 20110601

REACTIONS (5)
  - DYSPNOEA [None]
  - DYSPHAGIA [None]
  - NECK PAIN [None]
  - VISION BLURRED [None]
  - PAIN [None]
